FAERS Safety Report 4696593-X (Version None)
Quarter: 2005Q2

REPORT INFORMATION
  Report Type: 
  Country: None (occurrence: None)
  Receive Date: 20050620
  Receipt Date: 20050414
  Transmission Date: 20051028
  Serious: Yes (Hospitalization)
  Sender: FDA-Public Use
  Company Number: 200513148US

PATIENT
  Age: 81 Year
  Sex: Female

DRUGS (6)
  1. LANTUS [Suspect]
     Dates: start: 20040501
  2. INSULIN HUMAN INJECTION, ISOPHANE (HUMULIN N) [Concomitant]
  3. REPAGLINIDE (PRANDIN) [Concomitant]
  4. PIOGLITAZONE HCL [Concomitant]
  5. PIOGLITIAZONE [Concomitant]
  6. INSULIN INJECTION, ISOPHANE (NPH INSULIN) [Concomitant]

REACTIONS (6)
  - ANAPHYLACTIC SHOCK [None]
  - BURNING SENSATION [None]
  - DIABETES MELLITUS INADEQUATE CONTROL [None]
  - GLYCOSYLATED HAEMOGLOBIN INCREASED [None]
  - HYPOTENSION [None]
  - URTICARIA [None]
